FAERS Safety Report 7701948-2 (Version None)
Quarter: 2011Q3

REPORT INFORMATION
  Report Type: 
  Country: None (occurrence: None)
  Receive Date: 20110822
  Receipt Date: 20110808
  Transmission Date: 20111222
  Serious: Yes (Other)
  Sender: FDA-Public Use
  Company Number: PHHY2011AR72114

PATIENT
  Sex: Female

DRUGS (1)
  1. EXFORGE [Suspect]
     Indication: HYPERTENSION
     Dosage: UNK DF (160/10MG) DAILY, UNK
     Dates: start: 20110501

REACTIONS (3)
  - GAIT DISTURBANCE [None]
  - CEREBRAL DISORDER [None]
  - SPEECH DISORDER [None]
